FAERS Safety Report 19767336 (Version 1)
Quarter: 2021Q3

REPORT INFORMATION
  Report Type: Spontaneous
  Country: US (occurrence: US)
  Receive Date: 20210830
  Receipt Date: 20210830
  Transmission Date: 20211014
  Serious: Yes (Other)
  Sender: FDA-Public Use
  Company Number: None

PATIENT
  Age: 69 Year
  Sex: Male
  Weight: 150.07 kg

DRUGS (19)
  1. COREG [Concomitant]
     Active Substance: CARVEDILOL
  2. LISINOPRIL. [Concomitant]
     Active Substance: LISINOPRIL
  3. TYLENOL EXTRA STRENGTH [Concomitant]
     Active Substance: ACETAMINOPHEN
  4. DIAZEPAM. [Concomitant]
     Active Substance: DIAZEPAM
  5. IBUPROFEN. [Concomitant]
     Active Substance: IBUPROFEN
  6. DEPO?MEDROL [Concomitant]
     Active Substance: METHYLPREDNISOLONE ACETATE
  7. NORVASC [Concomitant]
     Active Substance: AMLODIPINE BESYLATE
  8. VITAMIN D3 [Concomitant]
     Active Substance: CHOLECALCIFEROL
  9. PROSTAGENIX [Concomitant]
  10. OXYCODONE [Concomitant]
     Active Substance: OXYCODONE
  11. AMLODIPINE [Concomitant]
     Active Substance: AMLODIPINE BESYLATE
  12. ELDERBERRY [Concomitant]
     Active Substance: HERBALS
  13. CLONIDINE. [Concomitant]
     Active Substance: CLONIDINE
  14. VITAMIN C [Concomitant]
     Active Substance: ASCORBIC ACID
  15. LIDOCAINE. [Concomitant]
     Active Substance: LIDOCAINE
  16. CAPECITABINE. [Suspect]
     Active Substance: CAPECITABINE
     Indication: COLON CANCER
     Route: 048
     Dates: start: 20210811
  17. ZYRTEC [Concomitant]
     Active Substance: CETIRIZINE HYDROCHLORIDE
  18. CHLORTHALIDONE. [Concomitant]
     Active Substance: CHLORTHALIDONE
  19. METHOCARBAMOL. [Concomitant]
     Active Substance: METHOCARBAMOL

REACTIONS (1)
  - Dyschezia [None]

NARRATIVE: CASE EVENT DATE: 20210830
